FAERS Safety Report 12933524 (Version 5)
Quarter: 2017Q2

REPORT INFORMATION
  Report Type: Report from Study
  Country: JP (occurrence: JP)
  Receive Date: 20161111
  Receipt Date: 20170622
  Transmission Date: 20170830
  Serious: Yes (Hospitalization, Other)
  Sender: FDA-Public Use
  Company Number: JP-BRISTOL-MYERS SQUIBB COMPANY-BMS-2016-016644

PATIENT
  Age: 65 Year
  Sex: Male

DRUGS (10)
  1. NIVOLUMAB [Suspect]
     Active Substance: NIVOLUMAB
     Indication: PRODUCT USED FOR UNKNOWN INDICATION
     Dosage: 3 MG/KG, 140 MG
     Route: 041
     Dates: start: 20160304, end: 20160304
  2. NIVOLUMAB [Suspect]
     Active Substance: NIVOLUMAB
     Indication: NON-SMALL CELL LUNG CANCER RECURRENT
     Dosage: 3 MG/KG, 140 MG
     Route: 041
     Dates: start: 20160205, end: 20160205
  3. NIVOLUMAB [Suspect]
     Active Substance: NIVOLUMAB
     Indication: PRODUCT USED FOR UNKNOWN INDICATION
     Dosage: 3 MG/KG, 140 MG
     Route: 041
     Dates: start: 20160401, end: 20160401
  4. NIVOLUMAB [Suspect]
     Active Substance: NIVOLUMAB
     Indication: PRODUCT USED FOR UNKNOWN INDICATION
     Dosage: 3 MG/KG, 140 MG
     Route: 041
     Dates: start: 20160502, end: 20160502
  5. NIVOLUMAB [Suspect]
     Active Substance: NIVOLUMAB
     Indication: PRODUCT USED FOR UNKNOWN INDICATION
     Dosage: 3 MG/KG, 140 MG
     Route: 041
     Dates: start: 20160318, end: 20160318
  6. NIVOLUMAB [Suspect]
     Active Substance: NIVOLUMAB
     Indication: PRODUCT USED FOR UNKNOWN INDICATION
     Dosage: 3 MG/KG, 140 MG
     Route: 041
     Dates: start: 20160219, end: 20160219
  7. NIVOLUMAB [Suspect]
     Active Substance: NIVOLUMAB
     Indication: PRODUCT USED FOR UNKNOWN INDICATION
     Dosage: 3 MG/KG, 140 MG
     Route: 041
     Dates: start: 20160418, end: 20160418
  8. LOXONIN [Suspect]
     Active Substance: LOXOPROFEN SODIUM
     Indication: PYREXIA
     Dosage: UNK
     Route: 048
     Dates: start: 2016
  9. SOLU-CORTEF [Suspect]
     Active Substance: HYDROCORTISONE SODIUM SUCCINATE
     Indication: HYPOPHYSITIS
     Dosage: 100 MG, UNK
     Route: 041
     Dates: start: 20160516, end: 20160516
  10. DECADRON [Concomitant]
     Active Substance: DEXAMETHASONE
     Indication: PRODUCT USED FOR UNKNOWN INDICATION
     Dosage: UNK
     Route: 065
     Dates: start: 20160408

REACTIONS (13)
  - Renal impairment [Recovered/Resolved]
  - Pneumonia [Recovering/Resolving]
  - Hypophysitis [Recovered/Resolved with Sequelae]
  - Anaemia [Recovering/Resolving]
  - Malaise [Recovered/Resolved]
  - Hepatic function abnormal [Recovered/Resolved]
  - Differential white blood cell count abnormal [Recovered/Resolved]
  - Erythema multiforme [Recovered/Resolved]
  - Hyperchloraemia [Recovered/Resolved]
  - Blood uric acid increased [Recovered/Resolved]
  - Transfusion [Recovering/Resolving]
  - C-reactive protein increased [Recovered/Resolved]
  - White blood cell count increased [Recovered/Resolved]

NARRATIVE: CASE EVENT DATE: 20160205
